FAERS Safety Report 10031643 (Version 5)
Quarter: 2014Q2

REPORT INFORMATION
  Report Type: Spontaneous
  Country: US (occurrence: US)
  Receive Date: 20140324
  Receipt Date: 20140620
  Transmission Date: 20141212
  Serious: Yes (Hospitalization)
  Sender: FDA-Public Use
  Company Number: US-PFIZER INC-2014081678

PATIENT
  Age: 58 Year
  Sex: Male
  Weight: 70.3 kg

DRUGS (1)
  1. VFEND [Suspect]
     Indication: PULMONARY MYCOSIS
     Dosage: 200 MG, 2X/DAY
     Dates: start: 20140223

REACTIONS (5)
  - Lung infection [Unknown]
  - Malaise [Unknown]
  - Activities of daily living impaired [Not Recovered/Not Resolved]
  - Impaired healing [Unknown]
  - Hypotension [Unknown]
